FAERS Safety Report 19476615 (Version 1)
Quarter: 2021Q2

REPORT INFORMATION
  Report Type: Report from Study
  Country: DE (occurrence: DE)
  Receive Date: 20210630
  Receipt Date: 20210630
  Transmission Date: 20210717
  Serious: Yes (Hospitalization)
  Sender: FDA-Public Use
  Company Number: DE-ELI_LILLY_AND_COMPANY-DE202006001495

PATIENT
  Age: 63 Year
  Sex: Female

DRUGS (3)
  1. FORSTEO [Suspect]
     Active Substance: TERIPARATIDE
     Dosage: 1 DOSAGE FORM, DAILY
     Route: 058
     Dates: start: 20200603
  2. CORTISONE [Concomitant]
     Active Substance: CORTISONE
     Indication: PRODUCT USED FOR UNKNOWN INDICATION
  3. FORSTEO [Suspect]
     Active Substance: TERIPARATIDE
     Indication: OSTEOPOROSIS
     Dosage: 1 DOSAGE FORM, DAILY
     Route: 058
     Dates: start: 20200512, end: 20200526

REACTIONS (26)
  - Dyspnoea [Not Recovered/Not Resolved]
  - Hypotension [Not Recovered/Not Resolved]
  - Jaw disorder [Unknown]
  - General physical health deterioration [Not Recovered/Not Resolved]
  - Renal failure [Unknown]
  - Lung disorder [Not Recovered/Not Resolved]
  - Myalgia [Not Recovered/Not Resolved]
  - Musculoskeletal chest pain [Unknown]
  - Heart rate increased [Unknown]
  - Malaise [Unknown]
  - Back pain [Unknown]
  - Asthenia [Recovered/Resolved]
  - Tooth fracture [Unknown]
  - Device breakage [Unknown]
  - Nausea [Not Recovered/Not Resolved]
  - Fatigue [Not Recovered/Not Resolved]
  - Cold sweat [Recovering/Resolving]
  - Cardiac failure [Not Recovered/Not Resolved]
  - Nosocomial infection [Unknown]
  - Pyrexia [Recovered/Resolved]
  - Hypotension [Recovered/Resolved]
  - Rib fracture [Not Recovered/Not Resolved]
  - Poor quality sleep [Unknown]
  - Tooth disorder [Unknown]
  - Feeling cold [Unknown]
  - Injection site pain [Not Recovered/Not Resolved]

NARRATIVE: CASE EVENT DATE: 20200514
